FAERS Safety Report 25535762 (Version 1)
Quarter: 2025Q3

REPORT INFORMATION
  Report Type: Spontaneous
  Country: US (occurrence: US)
  Receive Date: 20250709
  Receipt Date: 20250709
  Transmission Date: 20251021
  Serious: No
  Sender: VIRTUS PHARMACEUTICALS
  Company Number: US-ACERTIS PHARMACEUTICALS, LLC-2024VTS00020

PATIENT
  Age: 60 Year
  Sex: Female
  Weight: 66.667 kg

DRUGS (4)
  1. PROMETRIUM [Suspect]
     Active Substance: PROGESTERONE
     Indication: Menopausal symptoms
     Dosage: 100 MG, 1X/DAY EVERY NIGHT
     Route: 048
     Dates: start: 202406, end: 202407
  2. PROMETRIUM [Suspect]
     Active Substance: PROGESTERONE
     Indication: Insomnia
  3. VITAMIN D NOS [Concomitant]
     Active Substance: CHOLECALCIFEROL\ERGOCALCIFEROL
  4. VITAMIN B [Concomitant]
     Active Substance: VITAMIN B

REACTIONS (5)
  - Illness [Recovered/Resolved]
  - Head discomfort [Recovered/Resolved]
  - Tinnitus [Recovered/Resolved]
  - Nausea [Recovered/Resolved]
  - Product quality issue [Recovered/Resolved]

NARRATIVE: CASE EVENT DATE: 20240601
